FAERS Safety Report 19687170 (Version 1)
Quarter: 2021Q3

REPORT INFORMATION
  Report Type: Spontaneous
  Country: US (occurrence: US)
  Receive Date: 20210811
  Receipt Date: 20210811
  Transmission Date: 20211014
  Serious: No
  Sender: FDA-Public Use
  Company Number: US-PFIZER INC-2021404790

PATIENT
  Age: 81 Year
  Sex: Female

DRUGS (2)
  1. ISOSORBIDE. [Suspect]
     Active Substance: ISOSORBIDE
  2. XELJANZ XR [Suspect]
     Active Substance: TOFACITINIB CITRATE
     Dosage: 11 MG
     Dates: start: 20210329

REACTIONS (1)
  - Headache [Unknown]
